FAERS Safety Report 13716610 (Version 4)
Quarter: 2018Q2

REPORT INFORMATION
  Report Type: Report from Study
  Country: CR (occurrence: CR)
  Receive Date: 20170705
  Receipt Date: 20180423
  Transmission Date: 20180711
  Serious: Yes (Disabling, Other)
  Sender: FDA-Public Use
  Company Number: PHHY2016CR003165

PATIENT
  Age: 29 Year
  Sex: Male

DRUGS (2)
  1. GILENYA [Suspect]
     Active Substance: FINGOLIMOD HYDROCHLORIDE
     Indication: PRODUCT USED FOR UNKNOWN INDICATION
     Dosage: 0.5 MG, UNK
     Route: 065
     Dates: end: 20171129
  2. GILENYA [Suspect]
     Active Substance: FINGOLIMOD HYDROCHLORIDE
     Dosage: 0.5 MG, UNK
     Route: 065
     Dates: end: 20180405

REACTIONS (10)
  - Depression [Unknown]
  - Urinary incontinence [Recovering/Resolving]
  - General physical health deterioration [Unknown]
  - Multiple sclerosis [Unknown]
  - Depressed mood [Unknown]
  - Malaise [Unknown]
  - Dysarthria [Unknown]
  - Mobility decreased [Unknown]
  - Daydreaming [Unknown]
  - Product physical issue [Unknown]
